FAERS Safety Report 16129929 (Version 1)
Quarter: 2019Q1

REPORT INFORMATION
  Report Type: Spontaneous
  Country: FR (occurrence: FR)
  Receive Date: 20190328
  Receipt Date: 20190328
  Transmission Date: 20190418
  Serious: Yes (Life-Threatening)
  Sender: FDA-Public Use
  Company Number: FR-NAPPMUNDI-GBR-2019-0065302

PATIENT
  Age: 40 Year
  Sex: Female
  Weight: 68 kg

DRUGS (14)
  1. LUMIRELAX /01313101/ [Suspect]
     Active Substance: METHOCARBAMOL\METHYL NICOTINATE
     Indication: BACK PAIN
     Dosage: 2 DF, DAILY
     Route: 048
     Dates: start: 20190218, end: 20190220
  2. KETOPROFENE                        /00321701/ [Suspect]
     Active Substance: KETOPROFEN
     Indication: BACK PAIN
     Dosage: 200 MG, DAILY
     Route: 048
     Dates: start: 20190212, end: 20190220
  3. LEVETIRACETAM. [Concomitant]
     Active Substance: LEVETIRACETAM
  4. OXYNORMORO [Suspect]
     Active Substance: OXYCODONE HYDROCHLORIDE
     Indication: BACK PAIN
     Dosage: 1 DF, UNK (STRENGTH 5 MG)
     Route: 048
     Dates: start: 20190220, end: 20190220
  5. DOLIPRANE [Suspect]
     Active Substance: ACETAMINOPHEN
     Indication: BACK PAIN
     Dosage: 6 DF, DAILY
     Route: 048
     Dates: start: 20190216, end: 20190220
  6. ESOMEPRAZOLE. [Concomitant]
     Active Substance: ESOMEPRAZOLE MAGNESIUM
  7. LAMOTRIGINE. [Concomitant]
     Active Substance: LAMOTRIGINE
  8. SYNACTHENE /00137801/ [Suspect]
     Active Substance: COSYNTROPIN HEXAACETATE
     Indication: BACK PAIN
     Dosage: 1 DF, DAILY
     Route: 030
     Dates: start: 20190207, end: 20190211
  9. TOPALGIC                           /00599202/ [Suspect]
     Active Substance: TRAMADOL HYDROCHLORIDE
     Indication: BACK PAIN
     Dosage: 3 DF, DAILY
     Route: 048
     Dates: start: 20190216, end: 20190220
  10. MOVICOL [Suspect]
     Active Substance: POLYETHYLENE GLYCOL 3350\POTASSIUM CHLORIDE\SODIUM BICARBONATE\SODIUM CHLORIDE
     Indication: CONSTIPATION
     Dosage: 1 DF, DAILY
     Route: 048
     Dates: start: 20190216, end: 20190220
  11. OXYCONTIN [Suspect]
     Active Substance: OXYCODONE HYDROCHLORIDE
     Indication: PRODUCT USED FOR UNKNOWN INDICATION
     Dosage: 2 DF, DAILY
     Route: 048
     Dates: start: 20190220, end: 20190223
  12. OXCARBAZEPINE. [Concomitant]
     Active Substance: OXCARBAZEPINE
  13. LEFLUNOMIDE. [Suspect]
     Active Substance: LEFLUNOMIDE
     Indication: RHEUMATOID ARTHRITIS
     Dosage: 20 MG, DAILY
     Route: 048
     Dates: end: 20190220
  14. ACUPAN [Suspect]
     Active Substance: NEFOPAM HYDROCHLORIDE
     Indication: BACK PAIN
     Dosage: 3 DF, DAILY
     Route: 048
     Dates: start: 20190216, end: 20190220

REACTIONS (3)
  - Peptic ulcer [Recovering/Resolving]
  - Haematemesis [Recovered/Resolved]
  - Shock haemorrhagic [Recovered/Resolved]

NARRATIVE: CASE EVENT DATE: 20190220
